FAERS Safety Report 8251361-7 (Version None)
Quarter: 2012Q2

REPORT INFORMATION
  Report Type: 
  Country: None (occurrence: None)
  Receive Date: 20120402
  Receipt Date: 20120321
  Transmission Date: 20120825
  Serious: Yes (Other)
  Sender: FDA-Public Use
  Company Number: JP-GLAXOSMITHKLINE-B0790899A

PATIENT
  Age: 62 Year
  Sex: Female

DRUGS (10)
  1. MIRTAZAPINE [Suspect]
     Dosage: 15MG PER DAY
     Route: 048
  2. SULPIRIDE [Concomitant]
     Dosage: 50MG PER DAY
     Route: 065
  3. MIRTAZAPINE [Suspect]
     Dosage: 30MG PER DAY
     Route: 048
  4. OLANZAPINE [Concomitant]
     Dosage: 5MG PER DAY
     Route: 048
  5. SERTRALINE HYDROCHLORIDE [Suspect]
     Dosage: 50MG PER DAY
     Route: 048
  6. CARBAMAZEPINE [Concomitant]
     Dosage: 300MG PER DAY
     Route: 048
  7. MIANSERIN HYDROCHLORIDE [Concomitant]
     Dosage: 10MG PER DAY
     Route: 048
  8. SERTRALINE HYDROCHLORIDE [Suspect]
     Dosage: 25MG PER DAY
     Route: 048
  9. QUETIAPINE FUMARATE [Concomitant]
     Dosage: 100MG PER DAY
     Route: 048
  10. PAXIL [Suspect]
     Dosage: 20MG PER DAY
     Route: 048

REACTIONS (29)
  - STUPOR [None]
  - ELECTROENCEPHALOGRAM ABNORMAL [None]
  - VOMITING [None]
  - COGWHEEL RIGIDITY [None]
  - DISSOCIATION [None]
  - DEPRESSION [None]
  - STATUS EPILEPTICUS [None]
  - DYSKINESIA [None]
  - MYOCLONUS [None]
  - THINKING ABNORMAL [None]
  - CSF GLUCOSE INCREASED [None]
  - DYSPHEMIA [None]
  - DEPRESSED MOOD [None]
  - ANXIETY [None]
  - CEREBRAL VENTRICLE DILATATION [None]
  - AFFECT LABILITY [None]
  - NAUSEA [None]
  - PORIOMANIA [None]
  - ABDOMINAL DISCOMFORT [None]
  - DECREASED INTEREST [None]
  - APHAGIA [None]
  - ALTERED STATE OF CONSCIOUSNESS [None]
  - CONSCIOUSNESS FLUCTUATING [None]
  - TREMOR [None]
  - UNRESPONSIVE TO STIMULI [None]
  - SEROTONIN SYNDROME [None]
  - THOUGHT BLOCKING [None]
  - FEELING GUILTY [None]
  - MICTURITION DISORDER [None]
